FAERS Safety Report 16763624 (Version 6)
Quarter: 2021Q2

REPORT INFORMATION
  Report Type: Spontaneous
  Country: US (occurrence: US)
  Receive Date: 20190902
  Receipt Date: 20210407
  Transmission Date: 20210716
  Serious: Yes (Other)
  Sender: FDA-Public Use
  Company Number: US-GILEAD-2019-0425697

PATIENT
  Age: 60 Year
  Sex: Male

DRUGS (10)
  1. VITAMIN D 2000 [Concomitant]
     Active Substance: VITAMIN D NOS
  2. RANITIDINE. [Concomitant]
     Active Substance: RANITIDINE
  3. ATORVASTATIN [Concomitant]
     Active Substance: ATORVASTATIN
  4. DILTIAZEM. [Concomitant]
     Active Substance: DILTIAZEM
  5. LISINOPRIL AND HYDROCHLOROTHIAZIDE [Concomitant]
     Active Substance: HYDROCHLOROTHIAZIDE\LISINOPRIL
  6. TAMSULOSIN [Concomitant]
     Active Substance: TAMSULOSIN
  7. HYDROCODONE BITARTRATE AND ACETAMINOPHEN [Concomitant]
     Active Substance: ACETAMINOPHEN\HYDROCODONE BITARTRATE
  8. STRIBILD [Suspect]
     Active Substance: COBICISTAT\ELVITEGRAVIR\EMTRICITABINE\TENOFOVIR DISOPROXIL FUMARATE
     Indication: HIV INFECTION
     Dosage: UNK
     Route: 048
     Dates: start: 2017, end: 2018
  9. ALLOPURINOL. [Concomitant]
     Active Substance: ALLOPURINOL
  10. METHOCARBAMOL. [Concomitant]
     Active Substance: METHOCARBAMOL

REACTIONS (8)
  - Osteonecrosis [Unknown]
  - Anxiety [Unknown]
  - Tooth loss [Unknown]
  - Bone loss [Not Recovered/Not Resolved]
  - Anhedonia [Unknown]
  - Economic problem [Unknown]
  - Emotional distress [Unknown]
  - Pain [Unknown]

NARRATIVE: CASE EVENT DATE: 20190412
